FAERS Safety Report 9207868 (Version 1)
Quarter: 2013Q2

REPORT INFORMATION
  Report Type: Other
  Country: IT (occurrence: IT)
  Receive Date: 20130403
  Receipt Date: 20130403
  Transmission Date: 20140414
  Serious: Yes (Hospitalization)
  Sender: FDA-Public Use
  Company Number: IT-ACTAVIS-2013-05639

PATIENT
  Age: 30 Year
  Sex: Female
  Weight: 52 kg

DRUGS (3)
  1. PARACETAMOL (UNKNOWN) [Suspect]
     Indication: INTENTIONAL OVERDOSE
     Dosage: OVERDOSE WITH 16G TOTAL
     Route: 048
     Dates: start: 20130209, end: 20130209
  2. DICLOFENAC (UNKNOWN) [Suspect]
     Indication: INTENTIONAL OVERDOSE
     Dosage: OVERDOSE WITH 1000MG TOTAL
     Route: 048
     Dates: start: 20130209, end: 20130209
  3. MAALOX PLUS [Concomitant]
     Indication: PRODUCT USED FOR UNKNOWN INDICATION
     Route: 065

REACTIONS (4)
  - Toxicity to various agents [Recovered/Resolved]
  - Vomiting [Recovered/Resolved]
  - Intentional drug misuse [Unknown]
  - Overdose [Unknown]
